FAERS Safety Report 8852694 (Version 2)
Quarter: 2012Q4

REPORT INFORMATION
  Report Type: 
  Country: US (occurrence: US)
  Receive Date: 20121022
  Receipt Date: 20121207
  Transmission Date: 20130627
  Serious: Yes (Other)
  Sender: FDA-Public Use
  Company Number: PHEH2012US020374

PATIENT
  Sex: Male

DRUGS (1)
  1. VALTURNA [Suspect]
     Dosage: 1 DF (300/320 mg), UNK

REACTIONS (12)
  - Diabetes mellitus [Unknown]
  - Hepatitis C [Unknown]
  - Road traffic accident [Unknown]
  - Hepatic cirrhosis [Unknown]
  - Diverticulitis [Unknown]
  - Glaucoma [Unknown]
  - Cholelithiasis [Unknown]
  - Proteinuria [Unknown]
  - Feeling abnormal [Unknown]
  - Polyp [Unknown]
  - Depression [Unknown]
  - Hypertension [Unknown]
